FAERS Safety Report 9505362 (Version 1)
Quarter: 2013Q1

REPORT INFORMATION
  Report Type: Spontaneous
  Country: US (occurrence: None)
  Receive Date: 20130220
  Receipt Date: 20130220
  Transmission Date: 20140127
  Serious: No
  Sender: FDA-Public Use
  Company Number: 1000040618

PATIENT
  Age: 32 Year
  Sex: Female

DRUGS (4)
  1. VIIBRYD [Suspect]
     Indication: ALOPECIA AREATA
     Dosage: 10 MG, (10 MG, 1 IN 1 D), ORAL
     Route: 048
     Dates: start: 2012, end: 2012
  2. VIIBRYD [Suspect]
     Indication: ALOPECIA AREATA
     Route: 048
     Dates: start: 2012, end: 201210
  3. VIIBRYD [Suspect]
     Indication: ALOPECIA AREATA
     Dosage: 20 MG (20MG, 1 IN 1 D), ORAL
     Route: 048
     Dates: start: 201210, end: 201210
  4. KLONOPIN [Concomitant]

REACTIONS (3)
  - Hallucination [None]
  - Paranoia [None]
  - Insomnia [None]
